FAERS Safety Report 17345893 (Version 1)
Quarter: 2020Q1

REPORT INFORMATION
  Report Type: Spontaneous
  Country: FR (occurrence: FR)
  Receive Date: 20200129
  Receipt Date: 20200129
  Transmission Date: 20200409
  Serious: Yes (Death, Hospitalization)
  Sender: FDA-Public Use
  Company Number: FR-ELI_LILLY_AND_COMPANY-FR202001012560

PATIENT
  Age: 81 Year
  Sex: Male
  Weight: 86 kg

DRUGS (2)
  1. CARBOPLATINE [Suspect]
     Active Substance: CARBOPLATIN
     Indication: PERITONEAL MESOTHELIOMA MALIGNANT
     Dosage: 410 MG, UNKNOWN
     Route: 041
     Dates: start: 20191123, end: 20191123
  2. PEMETREXED. [Suspect]
     Active Substance: PEMETREXED
     Indication: PERITONEAL MESOTHELIOMA MALIGNANT
     Dosage: 1000 MG, UNKNOWN
     Route: 033
     Dates: start: 20191123, end: 20191123

REACTIONS (10)
  - Diarrhoea [Unknown]
  - Anaemia [Unknown]
  - Acute kidney injury [Unknown]
  - Febrile bone marrow aplasia [Unknown]
  - Mucosal inflammation [Unknown]
  - Colitis [Unknown]
  - Atrial fibrillation [Unknown]
  - Rash [Unknown]
  - Acute respiratory failure [Fatal]
  - Thrombocytopenia [Unknown]

NARRATIVE: CASE EVENT DATE: 20191202
